FAERS Safety Report 19782530 (Version 1)
Quarter: 2021Q3

REPORT INFORMATION
  Report Type: Report from Study
  Country: GB (occurrence: GB)
  Receive Date: 20210902
  Receipt Date: 20210902
  Transmission Date: 20211014
  Serious: Yes (Hospitalization, Other)
  Sender: FDA-Public Use
  Company Number: GB-SA-2021SA028813

PATIENT
  Sex: Female

DRUGS (6)
  1. SARILUMAB [Suspect]
     Active Substance: SARILUMAB
     Indication: RHEUMATOID ARTHRITIS
     Dosage: 150 MG, QOW
     Route: 058
     Dates: start: 2020
  2. ALENDRONIC ACID [Concomitant]
     Active Substance: ALENDRONIC ACID
  3. FOLIC ACID. [Concomitant]
     Active Substance: FOLIC ACID
  4. PREDNISOLONE. [Concomitant]
     Active Substance: PREDNISOLONE
  5. TRAMADOL. [Concomitant]
     Active Substance: TRAMADOL
  6. SARILUMAB [Suspect]
     Active Substance: SARILUMAB
     Dosage: 200 UNK
     Route: 058

REACTIONS (3)
  - White blood cell count decreased [Unknown]
  - Pneumonia [Unknown]
  - Surgery [Recovered/Resolved]
